FAERS Safety Report 8272935-3 (Version None)
Quarter: 2012Q2

REPORT INFORMATION
  Report Type: 
  Country: None (occurrence: None)
  Receive Date: 20120411
  Receipt Date: 20120330
  Transmission Date: 20120825
  Serious: Yes (Hospitalization, Other)
  Sender: FDA-Public Use
  Company Number: GB-ELI_LILLY_AND_COMPANY-GB201204000064

PATIENT
  Age: 73 Year
  Sex: Male

DRUGS (6)
  1. LOFEPRAMINE [Concomitant]
  2. ESOMEPRAZOLE MAGNESIUM [Concomitant]
  3. OLANZAPINE [Suspect]
     Indication: BIPOLAR DISORDER
     Dosage: UNK
     Route: 048
     Dates: end: 20120315
  4. DOMPERIDONE [Concomitant]
  5. FINASTERIDE [Concomitant]
  6. LITHIUM CARBONATE [Concomitant]
     Indication: BIPOLAR DISORDER

REACTIONS (7)
  - BLOOD CREATININE INCREASED [None]
  - DIARRHOEA [None]
  - NEUROLEPTIC MALIGNANT SYNDROME [None]
  - PAIN IN EXTREMITY [None]
  - BLOOD CREATINE PHOSPHOKINASE INCREASED [None]
  - URINE OUTPUT DECREASED [None]
  - DECREASED APPETITE [None]
